FAERS Safety Report 9929272 (Version 1)
Quarter: 2014Q1

REPORT INFORMATION
  Report Type: Spontaneous
  Country: US (occurrence: None)
  Receive Date: 20140221
  Receipt Date: 20140221
  Transmission Date: 20141002
  Serious: Yes (Other)
  Sender: FDA-Public Use
  Company Number: SYM-2014-16942

PATIENT
  Age: 64 Year
  Sex: Male

DRUGS (1)
  1. IMIQUIMOD [Suspect]
     Indication: ACTINIC KERATOSIS

REACTIONS (2)
  - Basosquamous carcinoma [None]
  - Malignant neoplasm progression [None]
